FAERS Safety Report 18957058 (Version 1)
Quarter: 2021Q1

REPORT INFORMATION
  Report Type: Spontaneous
  Country: US (occurrence: US)
  Receive Date: 20210301
  Receipt Date: 20210301
  Transmission Date: 20210420
  Serious: Yes (Hospitalization)
  Sender: FDA-Public Use
  Company Number: None

PATIENT
  Age: 70 Year
  Sex: Female

DRUGS (18)
  1. AMLODIPINE [Concomitant]
     Active Substance: AMLODIPINE BESYLATE
  2. ISOSORBIDE MONONITRATE. [Concomitant]
     Active Substance: ISOSORBIDE MONONITRATE
  3. NOVOLOG [Concomitant]
     Active Substance: INSULIN ASPART
  4. ASPIRIN. [Concomitant]
     Active Substance: ASPIRIN
  5. CLONIDINE. [Concomitant]
     Active Substance: CLONIDINE
  6. COLCRYS [Concomitant]
     Active Substance: COLCHICINE
  7. METFORMIN [Concomitant]
     Active Substance: METFORMIN HYDROCHLORIDE
  8. BYSTOLIC [Concomitant]
     Active Substance: NEBIVOLOL HYDROCHLORIDE
  9. OLMESARTAN [Concomitant]
     Active Substance: OLMESARTAN
  10. BAMLANIVIMAB. [Suspect]
     Active Substance: BAMLANIVIMAB
     Dosage: ?          OTHER FREQUENCY:ONCE;?
     Route: 042
     Dates: start: 20210129, end: 20210129
  11. METOPROLOL TARTRATE. [Concomitant]
     Active Substance: METOPROLOL TARTRATE
  12. ALLOPURINOL. [Concomitant]
     Active Substance: ALLOPURINOL
  13. ATORVASTATIN [Concomitant]
     Active Substance: ATORVASTATIN
  14. LANTUS [Concomitant]
     Active Substance: INSULIN GLARGINE
  15. FUROSEMIDE. [Concomitant]
     Active Substance: FUROSEMIDE
  16. GLYBURIDE. [Concomitant]
     Active Substance: GLYBURIDE
  17. HYDRALAZINE [Concomitant]
     Active Substance: HYDRALAZINE HYDROCHLORIDE
  18. LOSARTAN. [Concomitant]
     Active Substance: LOSARTAN

REACTIONS (1)
  - Asthenia [None]

NARRATIVE: CASE EVENT DATE: 20210211
